FAERS Safety Report 21425521 (Version 1)
Quarter: 2022Q4

REPORT INFORMATION
  Report Type: Report from Study
  Country: US (occurrence: US)
  Receive Date: 20221008
  Receipt Date: 20221008
  Transmission Date: 20230113
  Serious: No
  Sender: FDA-Public Use
  Company Number: US-ABBVIE-4146021

PATIENT
  Age: 52 Year
  Sex: Male

DRUGS (4)
  1. SKYRIZI [Suspect]
     Active Substance: RISANKIZUMAB-RZAA
     Indication: Psoriatic arthropathy
     Route: 058
     Dates: start: 2022
  2. SKYRIZI [Suspect]
     Active Substance: RISANKIZUMAB-RZAA
     Route: 058
     Dates: start: 20220703, end: 2022
  3. Pfizer [Concomitant]
     Indication: COVID-19 immunisation
     Dosage: FIRST DOSE ONE IN ONCE
     Route: 030
     Dates: start: 20211022, end: 20211022
  4. Pfizer [Concomitant]
     Indication: COVID-19 immunisation
     Dosage: SECOND DOSE ONE IN ONCE
     Route: 030
     Dates: start: 20211112, end: 20211112

REACTIONS (1)
  - Nephrolithiasis [Recovering/Resolving]

NARRATIVE: CASE EVENT DATE: 20220905
